FAERS Safety Report 4658771-5 (Version None)
Quarter: 2005Q2

REPORT INFORMATION
  Report Type: 
  Country: None (occurrence: None)
  Receive Date: 20050509
  Receipt Date: 20050428
  Transmission Date: 20051028
  Serious: Yes (Hospitalization)
  Sender: FDA-Public Use
  Company Number: 2005-04-2346

PATIENT
  Age: 75 Year
  Sex: Female

DRUGS (13)
  1. ISOSORBIDE MONONITRATE EXTENDED RELEASE [Suspect]
     Indication: MYOCARDIAL INFARCTION
     Dosage: 60 MG QD ORAL
     Route: 048
     Dates: end: 20041202
  2. DILTIAZEM [Suspect]
     Indication: VENTRICULAR DYSFUNCTION
     Dosage: 60 MG TID ORAL
     Route: 048
     Dates: end: 20041202
  3. LACTULOSE [Concomitant]
  4. SIMVASTATIN [Concomitant]
  5. SERETIDE               (SALMETEROL XINAFOATE/FLUTICASONE PROPIONATE) [Concomitant]
  6. LISINOPRIL [Suspect]
     Indication: VENTRICULAR DYSFUNCTION
     Dosage: 10 MG QD ORAL
     Route: 048
     Dates: end: 20041202
  7. ............... [Concomitant]
  8. TIOTROPIUM BROMIDE [Concomitant]
  9. LANSOPRAZOLE [Concomitant]
  10. CALCIUM CARBONATE [Concomitant]
  11. AMITRIPTYLINE [Concomitant]
  12. ACETYL SALICYLIC ACID USP BAT [Concomitant]
  13. CLOPIDOGREL BISULFATE [Concomitant]

REACTIONS (1)
  - CIRCULATORY COLLAPSE [None]
